FAERS Safety Report 4583451-4 (Version None)
Quarter: 2005Q1

REPORT INFORMATION
  Report Type: 
  Country: None (occurrence: None)
  Receive Date: 20050211
  Receipt Date: 20050126
  Transmission Date: 20050727
  Serious: Yes (Other)
  Sender: FDA-Public Use
  Company Number: TNZDE200500008

PATIENT
  Sex: Female

DRUGS (1)
  1. INNOHEP [Suspect]
     Indication: DEEP VEIN THROMBOSIS
     Dosage: WEIGHT-ADAPTED, SUBCUTANEOUS
     Route: 058

REACTIONS (3)
  - BLOOD ANTIDIURETIC HORMONE DECREASED [None]
  - FATIGUE [None]
  - HYPOAESTHESIA [None]
